FAERS Safety Report 16412723 (Version 5)
Quarter: 2020Q2

REPORT INFORMATION
  Report Type: Report from Study
  Country: CA (occurrence: CA)
  Receive Date: 20190611
  Receipt Date: 20200414
  Transmission Date: 20200713
  Serious: Yes (Other)
  Sender: FDA-Public Use
  Company Number: CA-BRISTOL-MYERS SQUIBB COMPANY-BMS-2017-022858

PATIENT
  Age: 69 Year
  Sex: Female

DRUGS (1)
  1. ABATACEPT [Suspect]
     Active Substance: ABATACEPT
     Indication: RHEUMATOID ARTHRITIS
     Dosage: 750 MILLIGRAM, QMO
     Route: 042
     Dates: start: 20150402

REACTIONS (11)
  - Gastric ulcer [Recovered/Resolved]
  - Headache [Unknown]
  - Stress [Unknown]
  - Body temperature increased [Unknown]
  - Helicobacter infection [Recovered/Resolved]
  - Joint injury [Unknown]
  - Vomiting [Not Recovered/Not Resolved]
  - Product dose omission [Unknown]
  - Musculoskeletal pain [Unknown]
  - Arthralgia [Unknown]
  - Cough [Recovering/Resolving]

NARRATIVE: CASE EVENT DATE: 20170310
